FAERS Safety Report 5128449-2 (Version None)
Quarter: 2006Q4

REPORT INFORMATION
  Report Type: 
  Country: None (occurrence: None)
  Receive Date: 20061011
  Receipt Date: 20060928
  Transmission Date: 20070319
  Serious: Yes (Other)
  Sender: FDA-Public Use
  Company Number: 2006US-03931

PATIENT
  Age: 19 Year
  Sex: Female

DRUGS (1)
  1. ISOTRETINOIN [Suspect]
     Dosage: 60 MG, QD, UNK
     Dates: start: 20060520, end: 20060905

REACTIONS (1)
  - DRUG EXPOSURE DURING PREGNANCY [None]
